FAERS Safety Report 6448271-4 (Version None)
Quarter: 2009Q4

REPORT INFORMATION
  Report Type: 
  Country: None (occurrence: None)
  Receive Date: 20091120
  Receipt Date: 20091110
  Transmission Date: 20100525
  Serious: Yes (Hospitalization)
  Sender: FDA-Public Use
  Company Number: JP-BRISTOL-MYERS SQUIBB COMPANY-14860498

PATIENT
  Age: 49 Year
  Sex: Female
  Weight: 68 kg

DRUGS (5)
  1. ABILIFY [Suspect]
     Indication: SCHIZOPHRENIA
     Dosage: 6MG(03OCT-16DEC08);18MG(17DEC08-25JAN09);24MG(26JAN-03FEB09)
     Route: 048
     Dates: start: 20081003, end: 20090203
  2. LIMAS [Concomitant]
     Dosage: TABLET
     Dates: start: 20080725, end: 20090203
  3. AKINETON [Concomitant]
     Dates: start: 20080801
  4. PAXIL [Concomitant]
     Dosage: TABLET;08AUG-16OCT08;17OCT08-25JAN09.
     Dates: start: 20080808, end: 20090125
  5. VEGETAMIN-B [Concomitant]
     Dosage: TABLET
     Dates: start: 20080919, end: 20090203

REACTIONS (2)
  - DELUSION [None]
  - HALLUCINATION [None]
